FAERS Safety Report 8082610-6 (Version None)
Quarter: 2012Q1

REPORT INFORMATION
  Report Type: 
  Country: None (occurrence: None)
  Receive Date: 20120127
  Receipt Date: 20110223
  Transmission Date: 20120608
  Serious: No
  Sender: FDA-Public Use
  Company Number: US-ABBOTT-11P-163-0707174-00

PATIENT
  Age: 61 Year
  Sex: Female

DRUGS (20)
  1. LYRICA [Concomitant]
  2. FORTAMET [Concomitant]
     Indication: PRODUCT USED FOR UNKNOWN INDICATION
     Dosage: DAILY
  3. ASCORBIC ACID [Concomitant]
     Indication: PRODUCT USED FOR UNKNOWN INDICATION
  4. HUMIRA [Suspect]
     Indication: PSORIASIS
     Dates: start: 20101008
  5. POLYETHYLENE GLYCOL [Concomitant]
     Indication: PRODUCT USED FOR UNKNOWN INDICATION
     Dosage: 17MG DAILY
     Route: 048
  6. LYRICA [Concomitant]
     Indication: PAIN IN EXTREMITY
     Route: 048
  7. ASPIRIN [Concomitant]
     Indication: PRODUCT USED FOR UNKNOWN INDICATION
  8. BYETTA [Concomitant]
     Indication: DIABETES MELLITUS
     Dosage: 10MCG DAILY
     Route: 048
  9. GLIMEPIRIDE [Concomitant]
     Indication: DIABETES MELLITUS
     Dosage: 2MG DAILY
     Route: 048
  10. VITAMIN A [Concomitant]
     Indication: PRODUCT USED FOR UNKNOWN INDICATION
  11. VITAMIN E [Concomitant]
     Indication: PRODUCT USED FOR UNKNOWN INDICATION
  12. METFFORMIN HYDROCHLORIDE [Concomitant]
     Indication: DIABETES MELLITUS
     Dosage: 1000MG DAILY
     Route: 048
  13. GLUCOSAMINE CHONDROITIN COMPLEX [Concomitant]
     Indication: PRODUCT USED FOR UNKNOWN INDICATION
     Dosage: TRIPLE STRENGTH 2 TABS DAILY
     Route: 048
  14. NASACORT [Concomitant]
     Indication: PRODUCT USED FOR UNKNOWN INDICATION
     Dosage: 2 SPRAYS IN EACH NOSTRIL EVERY NIGHT
  15. ACETAMINOPHEN [Concomitant]
     Indication: ARTHRALGIA
  16. CALCIUM [Concomitant]
     Indication: PRODUCT USED FOR UNKNOWN INDICATION
  17. LANTUS [Concomitant]
     Indication: DIABETES MELLITUS
     Dosage: 60 UNITS DAILY
     Route: 058
  18. MACRODANTIN [Concomitant]
     Indication: PROPHYLAXIS URINARY TRACT INFECTION
     Dosage: 50MG DAILY AT BEDTIM
  19. FUROSEMIDE [Concomitant]
     Indication: PRODUCT USED FOR UNKNOWN INDICATION
     Dosage: 20MG DAILY
     Route: 048
  20. ADVAIR DISKUS 100/50 [Concomitant]
     Indication: PRODUCT USED FOR UNKNOWN INDICATION
     Dosage: 250/50MG

REACTIONS (5)
  - CYST [None]
  - BRONCHITIS [None]
  - SENSATION OF FOREIGN BODY [None]
  - PSORIASIS [None]
  - ORAL FUNGAL INFECTION [None]
